FAERS Safety Report 18755795 (Version 1)
Quarter: 2021Q1

REPORT INFORMATION
  Report Type: Spontaneous
  Country: US (occurrence: US)
  Receive Date: 20210119
  Receipt Date: 20210119
  Transmission Date: 20210419
  Serious: Yes (Hospitalization, Other)
  Sender: FDA-Public Use
  Company Number: US-MYLANLABS-2021M1002215

PATIENT
  Age: 73 Year
  Sex: Female

DRUGS (3)
  1. OCTREOTIDE. [Suspect]
     Active Substance: OCTREOTIDE
     Indication: METASTATIC CARCINOID TUMOUR
     Dosage: UNK, MONTHLY
     Route: 065
     Dates: end: 201706
  2. CITALOPRAM [Suspect]
     Active Substance: CITALOPRAM HYDROBROMIDE
     Indication: MAJOR DEPRESSION
     Dosage: UNK
     Route: 065
     Dates: start: 2018
  3. OCTREOTIDE. [Suspect]
     Active Substance: OCTREOTIDE
     Indication: METASTASIS

REACTIONS (7)
  - Aortic valve incompetence [Unknown]
  - Cardiac failure acute [Unknown]
  - Carcinoid syndrome [Unknown]
  - Pulmonary valve incompetence [Unknown]
  - Disease progression [Unknown]
  - Tricuspid valve incompetence [Unknown]
  - Carcinoid heart disease [Unknown]
